FAERS Safety Report 14652365 (Version 2)
Quarter: 2018Q1

REPORT INFORMATION
  Report Type: Spontaneous
  Country: US (occurrence: US)
  Receive Date: 20180318
  Receipt Date: 20180330
  Transmission Date: 20180509
  Serious: Yes (Other)
  Sender: FDA-Public Use
  Company Number: US-ROCHE-2088943

PATIENT
  Age: 15 Year
  Sex: Male
  Weight: 44 kg

DRUGS (21)
  1. HEMLIBRA [Suspect]
     Active Substance: EMICIZUMAB-KXWH
     Indication: FACTOR VIII DEFICIENCY
     Dosage: 3/MG/KG/WK
     Route: 058
  2. OMEPRAZOLE. [Concomitant]
     Active Substance: OMEPRAZOLE
     Route: 048
  3. HEMLIBRA [Suspect]
     Active Substance: EMICIZUMAB-KXWH
     Route: 058
     Dates: start: 20180227, end: 20180306
  4. ZOFRAN [Concomitant]
     Active Substance: ONDANSETRON HYDROCHLORIDE
     Indication: NAUSEA
     Route: 048
  5. TYLENOL [Concomitant]
     Active Substance: ACETAMINOPHEN
     Indication: PAIN
  6. VENTOLIN [Concomitant]
     Active Substance: ALBUTEROL SULFATE
     Dosage: 2PUFF EVERY 4HR AS NEED FOR WHEEZING USE
     Route: 065
  7. MAGNESIUM CITRATE. [Concomitant]
     Active Substance: MAGNESIUM CITRATE
     Dosage: BY MOUTH EVERY DAY 2 DOSE
     Route: 065
  8. CULTURELLE [Concomitant]
     Active Substance: LACTOBACILLUS RHAMNOSUS
     Dosage: 1CAP BY MOUTH 2 X A DAY
     Route: 048
  9. SODIUM CHLORIDE. [Concomitant]
     Active Substance: SODIUM CHLORIDE
     Dosage: FLUSH PRE AND POST FACTOR INFUSIONS
     Route: 065
  10. ZONEGRAN [Concomitant]
     Active Substance: ZONISAMIDE
     Route: 048
  11. CETRIZINE [Concomitant]
     Active Substance: CETIRIZINE HYDROCHLORIDE
     Dosage: TAKE 1 TAB BY MOUTH ONCE DAILY
     Route: 048
  12. DRYSOL [Concomitant]
     Active Substance: ALUMINUM CHLORIDE
     Indication: ECZEMA
     Route: 061
  13. TRIAMCINOLONE [Concomitant]
     Active Substance: TRIAMCINOLONE
     Indication: ECZEMA
     Route: 065
  14. DESMOPRESSIN [Concomitant]
     Active Substance: DESMOPRESSIN
     Dosage: FLUSH PRE AND POST FACTOR INFUSIONS
     Route: 048
  15. MONTELUKAST [Concomitant]
     Active Substance: MONTELUKAST SODIUM
     Dosage: CHEW AND SWALLOW ONE TAB ONCE DAILY
     Route: 048
  16. TYLENOL [Concomitant]
     Active Substance: ACETAMINOPHEN
     Indication: PYREXIA
     Route: 048
  17. LACTULOSE. [Concomitant]
     Active Substance: LACTULOSE
     Indication: CONSTIPATION
     Route: 048
  18. FLOVENT HFA [Concomitant]
     Active Substance: FLUTICASONE PROPIONATE
     Indication: ASTHMA
     Route: 045
  19. HEPARIN [Concomitant]
     Active Substance: HEPARIN SODIUM
     Dosage: 5ML IV PUSH AFTER PORT INFUSIONS
     Route: 042
  20. CLONAZEPAM. [Concomitant]
     Active Substance: CLONAZEPAM
     Indication: SEIZURE
     Dosage: LASTER LONGING 5 MIN PLACE 1 TAB BET CHEEK + GUM
     Route: 048
  21. KETOCONAZOLE. [Concomitant]
     Active Substance: KETOCONAZOLE
     Dosage: 1APPLICATION AFFECTED AREA 2 X A DAY
     Route: 065

REACTIONS (5)
  - Penile pain [Unknown]
  - Haematuria [Unknown]
  - Haematuria [Recovered/Resolved]
  - Nephrolithiasis [Unknown]
  - Penile swelling [Unknown]

NARRATIVE: CASE EVENT DATE: 20180306
